FAERS Safety Report 10236689 (Version 1)
Quarter: 2014Q2

REPORT INFORMATION
  Report Type: Spontaneous
  Country: DE (occurrence: DE)
  Receive Date: 20140613
  Receipt Date: 20140613
  Transmission Date: 20141212
  Serious: Yes (Other)
  Sender: FDA-Public Use
  Company Number: DE-ACTAVIS-2014-12480

PATIENT
  Age: 34 Year
  Sex: Female

DRUGS (16)
  1. FLUOXETINE (UNKNOWN) [Suspect]
     Indication: PRODUCT USED FOR UNKNOWN INDICATION
     Dosage: 20 MG, DAILY
     Route: 048
     Dates: end: 20140209
  2. MELPERONE (UNKNOWN) [Suspect]
     Indication: PRODUCT USED FOR UNKNOWN INDICATION
     Dosage: 25 MG, DAILY
     Route: 048
     Dates: start: 20140131, end: 20140208
  3. IBUPROFEN (UNKNOWN) [Suspect]
     Indication: PRODUCT USED FOR UNKNOWN INDICATION
     Dosage: 1200 MG, DAILY
     Route: 048
     Dates: start: 20140206, end: 20140209
  4. IBUPROFEN (UNKNOWN) [Suspect]
     Dosage: 1800 MG, UNK
     Route: 048
     Dates: start: 20140124, end: 20140205
  5. SIMVASTATIN (UNKNOWN) [Suspect]
     Indication: PRODUCT USED FOR UNKNOWN INDICATION
     Dosage: 20 MG, DAILY
     Route: 048
     Dates: end: 20140210
  6. PANTOZOL                           /01263204/ [Suspect]
     Indication: PRODUCT USED FOR UNKNOWN INDICATION
     Dosage: 20 MG, DAILY
     Route: 048
  7. KEPPRA [Suspect]
     Indication: PRODUCT USED FOR UNKNOWN INDICATION
     Dosage: 1500 MG, DAILY
     Route: 048
  8. CLEXANE [Suspect]
     Indication: PRODUCT USED FOR UNKNOWN INDICATION
     Dosage: 0,2 ML DAILY
     Route: 058
     Dates: start: 20140124, end: 20140202
  9. NOVAMINSULFON [Concomitant]
     Indication: PRODUCT USED FOR UNKNOWN INDICATION
     Dosage: 1000 MG, DAILY
     Route: 048
     Dates: start: 20140209
  10. NOVAMINSULFON [Concomitant]
     Dosage: 2000 MG, DAILY
     Route: 048
     Dates: start: 20140124, end: 20140208
  11. OXYGESIC [Concomitant]
     Indication: PRODUCT USED FOR UNKNOWN INDICATION
     Dosage: 5 MG, DAILY
     Route: 048
     Dates: start: 20140207, end: 20140210
  12. OXYGESIC [Concomitant]
     Dosage: 10 MG, DAILY
     Route: 048
     Dates: start: 20140204, end: 20140206
  13. OXYGESIC [Concomitant]
     Dosage: 20 MG, DAILY
     Route: 048
     Dates: start: 20140124, end: 20140203
  14. MACROGOL [Concomitant]
     Indication: PRODUCT USED FOR UNKNOWN INDICATION
     Dosage: 1 DF DAILY
     Route: 065
     Dates: start: 20140128, end: 20140304
  15. PROTAPHANE [Concomitant]
     Indication: PRODUCT USED FOR UNKNOWN INDICATION
     Dosage: 9 IU, DAILY
     Route: 058
  16. ACTRAPID [Concomitant]
     Indication: PRODUCT USED FOR UNKNOWN INDICATION
     Dosage: 7 IU, DAILY
     Route: 058

REACTIONS (4)
  - Hepatic enzyme increased [Recovering/Resolving]
  - Aspartate aminotransferase increased [None]
  - Gamma-glutamyltransferase increased [None]
  - Alanine aminotransferase increased [None]
